FAERS Safety Report 5618503-0 (Version None)
Quarter: 2008Q1

REPORT INFORMATION
  Report Type: 
  Country: None (occurrence: None)
  Receive Date: 20080207
  Receipt Date: 20080125
  Transmission Date: 20080703
  Serious: Yes (Other)
  Sender: FDA-Public Use
  Company Number: US-AMGEN-QUU262665

PATIENT
  Sex: Male

DRUGS (1)
  1. ENBREL [Suspect]
     Indication: DRUG USE FOR UNKNOWN INDICATION

REACTIONS (1)
  - LYMPHOMA [None]
